FAERS Safety Report 9458936 (Version 1)
Quarter: 2013Q3

REPORT INFORMATION
  Report Type: Report from Study
  Country: CA (occurrence: CA)
  Receive Date: 20130814
  Receipt Date: 20130814
  Transmission Date: 20140515
  Serious: Yes (Other)
  Sender: FDA-Public Use
  Company Number: CA-UCBSA-094754

PATIENT
  Age: 47 Year
  Sex: Female
  Weight: 46.4 kg

DRUGS (15)
  1. CIMZIA [Suspect]
     Indication: RHEUMATOID ARTHRITIS
     Route: 058
     Dates: start: 20121001
  2. CIMZIA [Suspect]
     Indication: RHEUMATOID ARTHRITIS
     Route: 058
     Dates: start: 20120820, end: 20120917
  3. MELOXICAM [Concomitant]
     Indication: ANALGESIC THERAPY
     Route: 048
  4. FOLIC ACID [Concomitant]
     Indication: VITAMIN SUPPLEMENTATION
     Dosage: ONCE DAILY 6/7
     Route: 048
     Dates: start: 1998
  5. METHOTREXATE [Concomitant]
     Indication: RHEUMATOID ARTHRITIS
     Dosage: WEEKLY
     Route: 048
     Dates: start: 1998
  6. ARAVA [Concomitant]
     Indication: RHEUMATOID ARTHRITIS
     Route: 048
     Dates: start: 20120418
  7. PREVACID [Concomitant]
     Indication: GASTROINTESTINAL DISORDER
     Route: 048
  8. DETROL LA [Concomitant]
     Indication: CYSTITIS
     Route: 048
  9. CLONAZEPAM [Concomitant]
     Route: 048
  10. CLONAZEPAM [Concomitant]
     Route: 048
  11. PERCOCET [Concomitant]
     Indication: ANALGESIC THERAPY
     Dosage: 6-8 TABS DAILY
     Route: 048
  12. ATIVAN [Concomitant]
     Dosage: HS
     Route: 060
  13. CRESTOR [Concomitant]
     Indication: HYPERCHOLESTEROLAEMIA
     Route: 048
  14. MACROBID [Concomitant]
     Indication: URINARY TRACT INFECTION
  15. CIPRO [Concomitant]
     Indication: URINARY TRACT INFECTION
     Dosage: X 5 DAYS

REACTIONS (4)
  - Weight decreased [Not Recovered/Not Resolved]
  - Urinary tract infection [Recovered/Resolved]
  - Diarrhoea [Not Recovered/Not Resolved]
  - Dizziness [Not Recovered/Not Resolved]
